FAERS Safety Report 22352848 (Version 8)
Quarter: 2023Q4

REPORT INFORMATION
  Report Type: Report from Study
  Country: US (occurrence: US)
  Receive Date: 20230523
  Receipt Date: 20231206
  Transmission Date: 20240109
  Serious: Yes (Other)
  Sender: FDA-Public Use
  Company Number: US-ABBVIE-4772346

PATIENT
  Sex: Male

DRUGS (5)
  1. IMBRUVICA [Suspect]
     Active Substance: IBRUTINIB
     Indication: Waldenstrom^s macroglobulinaemia
     Route: 048
     Dates: start: 20230509
  2. IMBRUVICA [Suspect]
     Active Substance: IBRUTINIB
     Indication: Waldenstrom^s macroglobulinaemia
     Dosage: LAST ADMIN DATE: MAY 2023
     Route: 048
     Dates: start: 202304
  3. IMBRUVICA [Suspect]
     Active Substance: IBRUTINIB
     Indication: Waldenstrom^s macroglobulinaemia
     Dosage: LAST ADMIN DATE - MAY 2023
     Route: 048
     Dates: start: 20230509
  4. IMBRUVICA [Suspect]
     Active Substance: IBRUTINIB
     Indication: Waldenstrom^s macroglobulinaemia
     Route: 048
     Dates: start: 202305
  5. IMBRUVICA [Suspect]
     Active Substance: IBRUTINIB
     Indication: Waldenstrom^s macroglobulinaemia
     Route: 048
     Dates: start: 20230502, end: 2023

REACTIONS (21)
  - Haemoglobin decreased [Unknown]
  - Blood iron decreased [Unknown]
  - Fall [Unknown]
  - Depression [Unknown]
  - Walking aid user [Not Recovered/Not Resolved]
  - Drug ineffective [Unknown]
  - Asthenia [Unknown]
  - Red blood cell count decreased [Unknown]
  - Surgery [Unknown]
  - Epistaxis [Not Recovered/Not Resolved]
  - Decreased appetite [Unknown]
  - Balance disorder [Unknown]
  - Nasopharyngitis [Unknown]
  - Gait disturbance [Not Recovered/Not Resolved]
  - Faeces discoloured [Unknown]
  - Loss of personal independence in daily activities [Unknown]
  - Dysphonia [Unknown]
  - Pericardial effusion [Unknown]
  - Rhinorrhoea [Not Recovered/Not Resolved]
  - Emotional distress [Unknown]
  - Muscular weakness [Unknown]

NARRATIVE: CASE EVENT DATE: 20230101
